FAERS Safety Report 9294661 (Version 1)
Quarter: 2013Q2

REPORT INFORMATION
  Report Type: Spontaneous
  Country: JP (occurrence: JP)
  Receive Date: 20130517
  Receipt Date: 20130517
  Transmission Date: 20140414
  Serious: Yes (Hospitalization)
  Sender: FDA-Public Use
  Company Number: JP-009507513-1305JPN008901

PATIENT
  Age: 69 Year
  Sex: Male

DRUGS (1)
  1. ZETIA TABLETS 10MG [Suspect]
     Route: 048

REACTIONS (1)
  - Jaundice cholestatic [Unknown]
